FAERS Safety Report 15130638 (Version 3)
Quarter: 2018Q3

REPORT INFORMATION
  Report Type: Spontaneous
  Country: FR (occurrence: FR)
  Receive Date: 20180711
  Receipt Date: 20180718
  Transmission Date: 20181010
  Serious: Yes (Death, Hospitalization)
  Sender: FDA-Public Use
  Company Number: FR-PFIZER INC-2018274954

PATIENT
  Age: 63 Year
  Sex: Male
  Weight: 84 kg

DRUGS (7)
  1. ONDANSETRON ACCORD [Suspect]
     Active Substance: ONDANSETRON
     Indication: PROPHYLAXIS OF NAUSEA AND VOMITING
     Dosage: 8 MG, SINGLE
     Route: 042
     Dates: start: 20180511, end: 20180511
  2. EMEND [Suspect]
     Active Substance: APREPITANT
     Indication: PROPHYLAXIS OF NAUSEA AND VOMITING
     Dosage: 125 MG, 1X/DAY
     Route: 048
     Dates: start: 20180511, end: 20180513
  3. CARBOPLATINE HOSPIRA [Suspect]
     Active Substance: CARBOPLATIN
     Indication: BRONCHIAL CARCINOMA
     Dosage: 430 MG, SINGLE
     Route: 042
     Dates: start: 20180511, end: 20180511
  4. ALIMTA [Suspect]
     Active Substance: PEMETREXED DISODIUM
     Indication: BRONCHIAL CARCINOMA
     Dosage: 1000 MG, SINGLE
     Route: 041
     Dates: start: 20180511, end: 20180511
  5. FOLIC ACID. [Suspect]
     Active Substance: FOLIC ACID
     Indication: PROPHYLAXIS
     Dosage: 0.4 MG, 1X/DAY
     Route: 048
     Dates: start: 20180511, end: 20180604
  6. METHYLPREDNISOLONE MYLAN /00049602/ [Suspect]
     Active Substance: METHYLPREDNISOLONE SODIUM SUCCINATE
     Indication: PROPHYLAXIS
     Dosage: 80 MG, SINGLE
     Route: 042
     Dates: start: 20180511, end: 20180511
  7. CORTANCYL [Suspect]
     Active Substance: PREDNISONE
     Indication: PROPHYLAXIS
     Dosage: 60 MG, 1X/DAY
     Route: 048
     Dates: start: 20180510, end: 20180512

REACTIONS (8)
  - Diarrhoea [Fatal]
  - Septic shock [Fatal]
  - Asthenia [Fatal]
  - Melaena [Fatal]
  - Inflammation [Fatal]
  - Hypotension [Fatal]
  - Acute kidney injury [Fatal]
  - White blood cell count increased [Fatal]

NARRATIVE: CASE EVENT DATE: 2018
